FAERS Safety Report 7602713-7 (Version None)
Quarter: 2011Q3

REPORT INFORMATION
  Report Type: 
  Country: None (occurrence: None)
  Receive Date: 20110701
  Receipt Date: 20110620
  Transmission Date: 20111222
  Serious: Yes (Other)
  Sender: FDA-Public Use
  Company Number: 11-374

PATIENT
  Sex: Female
  Weight: 72.5755 kg

DRUGS (1)
  1. ALEVE (CAPLET) [Suspect]
     Indication: ARTHRALGIA
     Dosage: 220 MG, TWICE DAILY ORAL
     Route: 048
     Dates: start: 20110606, end: 20110616

REACTIONS (2)
  - URINARY RETENTION [None]
  - MICTURITION URGENCY [None]
